FAERS Safety Report 14823071 (Version 1)
Quarter: 2018Q2

REPORT INFORMATION
  Report Type: Report from Study
  Country: US (occurrence: US)
  Receive Date: 20180427
  Receipt Date: 20180427
  Transmission Date: 20180711
  Serious: No
  Sender: FDA-Public Use
  Company Number: PHEH2018US015432

PATIENT
  Age: 58 Year

DRUGS (1)
  1. ENTRESTO [Suspect]
     Active Substance: SACUBITRIL\VALSARTAN
     Indication: PRODUCT USED FOR UNKNOWN INDICATION
     Dosage: UNK UNK, BID
     Route: 048
     Dates: start: 20180418

REACTIONS (6)
  - Confusional state [Unknown]
  - Flushing [Unknown]
  - Limb discomfort [Unknown]
  - Back pain [Unknown]
  - Muscular weakness [Unknown]
  - Renal pain [Unknown]

NARRATIVE: CASE EVENT DATE: 20180418
